FAERS Safety Report 5735811-3 (Version None)
Quarter: 2008Q2

REPORT INFORMATION
  Report Type: 
  Country: None (occurrence: None)
  Receive Date: 20080508
  Receipt Date: 20080508
  Transmission Date: 20081010
  Serious: Yes (Death, Hospitalization)
  Sender: FDA-Public Use
  Company Number: None

PATIENT
  Sex: Male
  Weight: 56 kg

DRUGS (9)
  1. DASATINIB [Suspect]
     Indication: SARCOMA
     Dosage: 100 MG DAILY PO
     Route: 048
     Dates: start: 20080211, end: 20080408
  2. ALBUTEROL [Concomitant]
  3. TENORMIN [Concomitant]
  4. LIPITOR [Concomitant]
  5. BENZONATATE -TESSALON PERLES- [Concomitant]
  6. NEURONTIN [Concomitant]
  7. ATARAX [Concomitant]
  8. ZESTRIL [Concomitant]
  9. PREDNISONE TAB [Concomitant]

REACTIONS (14)
  - ATRIAL FIBRILLATION [None]
  - BACTERIAL INFECTION [None]
  - BRONCHOSCOPY ABNORMAL [None]
  - CONSTIPATION [None]
  - DYSPNOEA [None]
  - FATIGUE [None]
  - GENERAL PHYSICAL HEALTH DETERIORATION [None]
  - MALIGNANT NEOPLASM PROGRESSION [None]
  - MALIGNANT PLEURAL EFFUSION [None]
  - METASTASES TO LUNG [None]
  - MUSCULOSKELETAL CHEST PAIN [None]
  - OXYGEN SATURATION DECREASED [None]
  - STAPHYLOCOCCAL INFECTION [None]
  - SUPRAVENTRICULAR EXTRASYSTOLES [None]
